FAERS Safety Report 8419291-5 (Version None)
Quarter: 2012Q2

REPORT INFORMATION
  Report Type: 
  Country: None (occurrence: None)
  Receive Date: 20120607
  Receipt Date: 20120530
  Transmission Date: 20120825
  Serious: Yes (Hospitalization, Other)
  Sender: FDA-Public Use
  Company Number: JP-ROCHE-1074581

PATIENT
  Age: 7 Decade
  Sex: Female

DRUGS (3)
  1. OXALIPLATIN [Concomitant]
     Indication: COLON CANCER METASTATIC
     Dosage: 12 COURSE, DOSAGE IS NCERTAIN.
     Route: 041
  2. XELODA [Suspect]
     Indication: COLON CANCER METASTATIC
     Dosage: 12 COURSE, DOSAGE IS NCERTAIN.
     Route: 048
  3. AVASTIN [Suspect]
     Indication: COLON CANCER METASTATIC
     Dosage: 10 COURSE, DOSAGE IS NCERTAIN.
     Route: 041

REACTIONS (4)
  - POST PROCEDURAL HAEMORRHAGE [None]
  - VARICOSE VEIN [None]
  - PORTAL HYPERTENSION [None]
  - ANAEMIA [None]
